FAERS Safety Report 21247796 (Version 1)
Quarter: 2022Q3

REPORT INFORMATION
  Report Type: Spontaneous
  Country: US (occurrence: US)
  Receive Date: 20220824
  Receipt Date: 20220824
  Transmission Date: 20221026
  Serious: No
  Sender: FDA-Public Use
  Company Number: US-JNJFOC-20220841268

PATIENT
  Age: 14 Year
  Sex: Female

DRUGS (2)
  1. STELARA [Suspect]
     Active Substance: USTEKINUMAB
     Indication: Crohn^s disease
     Route: 058
     Dates: start: 202109
  2. STELARA [Suspect]
     Active Substance: USTEKINUMAB
     Route: 023
     Dates: start: 20220818

REACTIONS (9)
  - Incorrect route of product administration [Unknown]
  - Injection site pain [Unknown]
  - Injection site bruising [Unknown]
  - Injection site pruritus [Unknown]
  - Incorrect dose administered [Unknown]
  - Injection site mass [Unknown]
  - Therapeutic response decreased [Unknown]
  - Off label use [Unknown]
  - Injection site extravasation [Unknown]

NARRATIVE: CASE EVENT DATE: 20210901
